FAERS Safety Report 11177503 (Version 1)
Quarter: 2015Q2

REPORT INFORMATION
  Report Type: Spontaneous
  Country: FR (occurrence: FR)
  Receive Date: 20150610
  Receipt Date: 20150610
  Transmission Date: 20150821
  Serious: Yes (Hospitalization)
  Sender: FDA-Public Use
  Company Number: FR-ACTAVIS-2015-11137

PATIENT
  Age: 56 Year
  Sex: Female

DRUGS (2)
  1. AVASTIN [Suspect]
     Active Substance: BEVACIZUMAB
     Indication: BREAST CANCER
     Dosage: 790 MG, DAILY
     Route: 042
     Dates: start: 20141126, end: 20141126
  2. PACLITAXEL ACTAVIS [Suspect]
     Active Substance: PACLITAXEL
     Indication: BREAST CANCER
     Dosage: 163.8 MG, TOTAL
     Route: 042
     Dates: start: 20141126, end: 20141126

REACTIONS (1)
  - Colitis [Recovered/Resolved]

NARRATIVE: CASE EVENT DATE: 20141128
